FAERS Safety Report 4477298-7 (Version None)
Quarter: 2004Q3

REPORT INFORMATION
  Report Type: 
  Country: None (occurrence: None)
  Receive Date: 20040923
  Receipt Date: 20040616
  Transmission Date: 20050211
  Serious: No
  Sender: FDA-Public Use
  Company Number: USA040670335

PATIENT
  Sex: Female

DRUGS (4)
  1. FORTEO [Suspect]
     Indication: OSTEOPOROSIS
     Dates: start: 20040607
  2. CLARINEX [Concomitant]
  3. ESTROGEN (ESTRADIOL) [Concomitant]
  4. CALCIUM CARBONATE [Concomitant]

REACTIONS (4)
  - EMOTIONAL DISTRESS [None]
  - LETHARGY [None]
  - URINE ABNORMALITY [None]
  - VULVOVAGINAL DISCOMFORT [None]
